FAERS Safety Report 6081327-7 (Version None)
Quarter: 2009Q1

REPORT INFORMATION
  Report Type: 
  Country: None (occurrence: None)
  Receive Date: 20090218
  Receipt Date: 20090210
  Transmission Date: 20090719
  Serious: Yes (Other)
  Sender: FDA-Public Use
  Company Number: PHHY2009JP05062

PATIENT
  Age: 71 Year
  Sex: Female

DRUGS (5)
  1. COMTAN [Suspect]
     Indication: DRUG EFFECT DECREASED
     Dosage: 600 MG DAILY
     Route: 048
  2. COMTAN [Suspect]
     Indication: PARKINSON'S DISEASE
  3. CARBIDOPA + LEVODOPA [Concomitant]
     Dosage: UNK
     Route: 048
  4. REQUIP [Concomitant]
     Dosage: 9 MG
     Route: 048
  5. SELEGILINE HCL [Concomitant]
     Dosage: UNK
     Route: 048

REACTIONS (2)
  - LOGORRHOEA [None]
  - PORIOMANIA [None]
